FAERS Safety Report 24213282 (Version 1)
Quarter: 2024Q3

REPORT INFORMATION
  Report Type: Spontaneous
  Country: US (occurrence: US)
  Receive Date: 20240815
  Receipt Date: 20240815
  Transmission Date: 20241017
  Serious: No
  Sender: SANOFI AVENTIS
  Company Number: US-SA-SAC20240813000171

PATIENT
  Age: 40 Year
  Sex: Male

DRUGS (2)
  1. DUPIXENT [Suspect]
     Active Substance: DUPILUMAB
     Indication: Nasal polyps
     Dosage: 300 MG, QOW
     Route: 058
     Dates: start: 2022
  2. DUPIXENT [Suspect]
     Active Substance: DUPILUMAB
     Dosage: 300 MG, QOW, 300MG, QOW SECOND START OF THERAPY 04/2024
     Route: 058
     Dates: start: 202404

REACTIONS (3)
  - Nasal congestion [Unknown]
  - Rhinorrhoea [Unknown]
  - Nasal obstruction [Unknown]

NARRATIVE: CASE EVENT DATE: 20240701
